FAERS Safety Report 22330907 (Version 1)
Quarter: 2023Q2

REPORT INFORMATION
  Report Type: Spontaneous
  Country: US (occurrence: None)
  Receive Date: 20230515
  Receipt Date: 20230515
  Transmission Date: 20230721
  Serious: Yes (Hospitalization)
  Sender: FDA-Public Use
  Company Number: None

PATIENT
  Age: 67 Year
  Sex: Female
  Weight: 87.75 kg

DRUGS (12)
  1. COSENTYX [Suspect]
     Active Substance: SECUKINUMAB
     Indication: Psoriatic arthropathy
     Dosage: FREQUENCY : MONTHLY;?
     Route: 058
     Dates: start: 20230130, end: 20230418
  2. ATORVASTATIN [Concomitant]
     Active Substance: ATORVASTATIN
     Dates: start: 20130520
  3. CARVEDILOL [Concomitant]
     Dates: start: 20220310
  4. ENTRESTO [Concomitant]
     Dates: start: 20220511
  5. FLUOXETINE [Concomitant]
     Active Substance: FLUOXETINE HYDROCHLORIDE
     Dates: start: 20110419
  6. FUROSEMIDE [Concomitant]
     Dates: start: 20220115
  7. JARDIANCE [Concomitant]
     Dates: start: 20230406
  8. LEVOTHYROXINE [Concomitant]
     Dates: start: 20150818
  9. METFORMIN ER [Concomitant]
     Dates: start: 20110419
  10. OMEPRAZOLE [Concomitant]
     Dates: start: 20130520
  11. ONGLYZA [Concomitant]
     Active Substance: SAXAGLIPTIN HYDROCHLORIDE
     Dates: start: 20210107
  12. SPIRONOLACTONE [Concomitant]
     Dates: start: 20220131

REACTIONS (4)
  - Cough [None]
  - Asthenia [None]
  - Nasal congestion [None]
  - Dyspnoea [None]

NARRATIVE: CASE EVENT DATE: 20230424
